FAERS Safety Report 8988992 (Version 1)
Quarter: 2012Q4

REPORT INFORMATION
  Report Type: 
  Country: US (occurrence: US)
  Receive Date: 20121228
  Receipt Date: 20121228
  Transmission Date: 20130627
  Serious: Yes (Hospitalization, Other)
  Sender: FDA-Public Use
  Company Number: US-ELI_LILLY_AND_COMPANY-US201212007244

PATIENT
  Sex: Female

DRUGS (6)
  1. CYMBALTA [Suspect]
     Indication: DEPRESSION
     Dosage: 60 mg, each morning
  2. CYMBALTA [Suspect]
     Dosage: 30 mg, each evening
  3. CYMBALTA [Suspect]
     Dosage: UNK, unknown
  4. CYMBALTA [Suspect]
     Dosage: 90 mg, qd
  5. METHADONE [Concomitant]
  6. FLEXALL [Concomitant]

REACTIONS (27)
  - Stent placement [Unknown]
  - Pharyngeal oedema [Unknown]
  - Dyspnoea [Unknown]
  - Blister [Unknown]
  - Convulsion [Unknown]
  - Suicidal ideation [Unknown]
  - Osteoarthritis [Unknown]
  - Osteoporosis [Unknown]
  - Arthritis [Unknown]
  - Stress fracture [Unknown]
  - Mobility decreased [Unknown]
  - Cartilage injury [Unknown]
  - Excoriation [Unknown]
  - Back pain [Unknown]
  - Diabetes mellitus [Unknown]
  - Chest pain [Unknown]
  - Drug withdrawal syndrome [Unknown]
  - Panic attack [Unknown]
  - Pruritus [Unknown]
  - Anxiety [Unknown]
  - Palpitations [Unknown]
  - Fall [Unknown]
  - Vomiting [Unknown]
  - Asthenia [Unknown]
  - Hypersomnia [Unknown]
  - Constipation [Unknown]
  - Wrong technique in drug usage process [Unknown]
